FAERS Safety Report 18678866 (Version 1)
Quarter: 2020Q4

REPORT INFORMATION
  Report Type: Spontaneous
  Country: US (occurrence: US)
  Receive Date: 20201230
  Receipt Date: 20201230
  Transmission Date: 20210114
  Serious: Yes (Other)
  Sender: FDA-Public Use
  Company Number: US-SA-2020SA369774

PATIENT

DRUGS (1)
  1. ZANTAC [Suspect]
     Active Substance: RANITIDINE HYDROCHLORIDE
     Indication: GASTROOESOPHAGEAL REFLUX DISEASE
     Dosage: 150 MG, QD
     Dates: start: 199202, end: 202006

REACTIONS (3)
  - Bladder cancer [Recovering/Resolving]
  - Renal cancer stage I [Recovering/Resolving]
  - Skin cancer [Unknown]

NARRATIVE: CASE EVENT DATE: 19841001
